FAERS Safety Report 25877137 (Version 1)
Quarter: 2025Q4

REPORT INFORMATION
  Report Type: Spontaneous
  Country: US (occurrence: None)
  Receive Date: 20251002
  Receipt Date: 20251002
  Transmission Date: 20260118
  Serious: Yes (Hospitalization)
  Sender: FDA-CTU
  Company Number: None

PATIENT
  Sex: Male

DRUGS (6)
  1. LENALIDOMIDE [Suspect]
     Active Substance: LENALIDOMIDE
     Indication: Plasma cell myeloma
     Dosage: ? TAKE 1 CAPSULE (15 MG TOTAL) BY MOUTH ONE TIME EACH DAY FOR 21 DAYS ON AND 7 DAYS OFF. TAKE  WHOLE WITH WATER; DO NOT BREAK, OR OPEN, OR CHEW.
     Route: 048
     Dates: start: 20250906
  2. ASPIRIN [Concomitant]
     Active Substance: ASPIRIN
  3. DARZALEX [Concomitant]
     Active Substance: DARATUMUMAB
  4. DEXAMETHASONE [Concomitant]
     Active Substance: DEXAMETHASONE
  5. FUROSEMIDE [Concomitant]
     Active Substance: FUROSEMIDE
  6. VELCADE [Concomitant]
     Active Substance: BORTEZOMIB

REACTIONS (2)
  - Hernia repair [None]
  - Therapy interrupted [None]
